FAERS Safety Report 5420706-5 (Version None)
Quarter: 2007Q3

REPORT INFORMATION
  Report Type: 
  Country: None (occurrence: None)
  Receive Date: 20070816
  Receipt Date: 20070726
  Transmission Date: 20080115
  Serious: Yes (Life-Threatening)
  Sender: FDA-Public Use
  Company Number: 6036362

PATIENT
  Age: 56 Year
  Sex: Male

DRUGS (20)
  1. BISOPROLOL FUMARATE [Suspect]
     Indication: MYOCARDIAL ISCHAEMIA
     Dosage: (5 MG)
  2. AMLODIPINE [Suspect]
     Indication: HYPERTENSION
     Dosage: (10 MG)
  3. ESCITALOPRAM OXALATE [Suspect]
     Indication: DEPRESSION
     Dosage: (20 MG)
     Dates: start: 20051219
  4. FRUSEMIDE [Suspect]
     Indication: DRUG USE FOR UNKNOWN INDICATION
  5. ASPIRIN [Concomitant]
  6. BENDROFLUMETHIAZIDE (BENDROFLUMETHIAZIDE) [Concomitant]
  7. BETAHISTINE (BETAHISTINE) [Concomitant]
  8. CLOPIDOGREL [Concomitant]
  9. DIPYRIDAMOLE [Concomitant]
  10. GABAPENTIN [Concomitant]
  11. GLYCERYL TRINITRATE (GLYCERYL TRINITRATE) [Concomitant]
  12. HYDRALAZINE HCL [Concomitant]
  13. IRBESARTAN [Concomitant]
  14. ISOSORBIDE MONONITRATE [Concomitant]
  15. NICORANDIL [Concomitant]
  16. NOVOMIX (INSULIN ASPART) [Concomitant]
  17. RANITIDINE [Concomitant]
  18. ROSUVASTATIN (ROSUVASTATIN) [Concomitant]
  19. THIAMINE (THIAMINE) [Concomitant]
  20. ZOPICLONE [Concomitant]

REACTIONS (4)
  - BRADYCARDIA [None]
  - HYPOTENSION [None]
  - MULTIPLE DRUG OVERDOSE INTENTIONAL [None]
  - SOMNOLENCE [None]
